FAERS Safety Report 5509679-4 (Version None)
Quarter: 2007Q4

REPORT INFORMATION
  Report Type: 
  Country: None (occurrence: None)
  Receive Date: 20071107
  Receipt Date: 20071107
  Transmission Date: 20080405
  Serious: Yes (Hospitalization)
  Sender: FDA-Public Use
  Company Number: None

PATIENT
  Age: 80 Year
  Sex: Male
  Weight: 81.8 kg

DRUGS (16)
  1. SPIRONOLACTONE [Suspect]
     Indication: HYPERTENSION
     Dosage: 1 TABLET EVERY EVENING PO
     Route: 048
     Dates: start: 20030101
  2. SPIRONOLACTONE [Suspect]
     Indication: OEDEMA
     Dosage: 1 TABLET EVERY EVENING PO
     Route: 048
     Dates: start: 20030101
  3. LISINOPRIL [Suspect]
     Indication: CARDIAC FAILURE CONGESTIVE
     Dosage: 1 TABLET DAILY PO
     Route: 048
     Dates: start: 20070123
  4. FUROSEMIDE [Concomitant]
  5. SIMVASTATIN [Concomitant]
  6. PSYLLIUM ORAL POWDER [Concomitant]
  7. ASPIRIN [Concomitant]
  8. ALLOPURINOL [Concomitant]
  9. METOPROLOL SUCCINATE [Concomitant]
  10. PREDNISONE TAB [Concomitant]
  11. FINASTERIDE [Concomitant]
  12. FLUNISOLIDE [Concomitant]
  13. LEVALBUTEROL TARTRATE [Concomitant]
  14. ACETAMINOPHEN [Concomitant]
  15. CALCIUM 500 MG/VITAMIN D 200 UNITS [Concomitant]
  16. DOXAZOSIN MESYLATE [Concomitant]

REACTIONS (9)
  - BLOOD PRESSURE DIASTOLIC DECREASED [None]
  - DIARRHOEA [None]
  - DRUG INTERACTION [None]
  - HYPERKALAEMIA [None]
  - HYPOPERFUSION [None]
  - HYPOVOLAEMIA [None]
  - RENAL DISORDER [None]
  - RENAL FAILURE ACUTE [None]
  - WEIGHT DECREASED [None]
